FAERS Safety Report 15080439 (Version 3)
Quarter: 2018Q3

REPORT INFORMATION
  Report Type: Report from Study
  Country: CA (occurrence: CA)
  Receive Date: 20180628
  Receipt Date: 20180911
  Transmission Date: 20181010
  Serious: Yes (Other)
  Sender: FDA-Public Use
  Company Number: CA-BRISTOL-MYERS SQUIBB COMPANY-BMS-2018-048529

PATIENT
  Age: 58 Year
  Sex: Male

DRUGS (2)
  1. NIVOLUMAB [Suspect]
     Active Substance: NIVOLUMAB
     Indication: MALIGNANT MELANOMA
     Dosage: 85 MG, Q3WK
     Route: 065
     Dates: start: 20180511
  2. YERVOY [Suspect]
     Active Substance: IPILIMUMAB
     Indication: MALIGNANT MELANOMA
     Dosage: 255 MG, Q3WK
     Route: 065
     Dates: start: 20180511

REACTIONS (11)
  - Pyrexia [Recovering/Resolving]
  - Lung disorder [Unknown]
  - Dyspnoea [Recovering/Resolving]
  - Increased appetite [Unknown]
  - Cough [Recovering/Resolving]
  - Gait disturbance [Unknown]
  - Pneumonia [Recovered/Resolved]
  - Erythema [Recovered/Resolved]
  - Fatigue [Recovering/Resolving]
  - Decreased appetite [Recovering/Resolving]
  - Weight decreased [Recovering/Resolving]

NARRATIVE: CASE EVENT DATE: 20180511
